FAERS Safety Report 5647360-1 (Version None)
Quarter: 2008Q1

REPORT INFORMATION
  Report Type: 
  Country: None (occurrence: None)
  Receive Date: 20080303
  Receipt Date: 20080220
  Transmission Date: 20080703
  Serious: Yes (Other)
  Sender: FDA-Public Use
  Company Number: US-KINGPHARMUSA00001-K200800215

PATIENT

DRUGS (1)
  1. EPIPEN [Suspect]
     Dosage: UNK, UNK

REACTIONS (4)
  - ACCIDENTAL EXPOSURE [None]
  - EXPIRED DRUG ADMINISTERED [None]
  - SKELETAL INJURY [None]
  - TREMOR [None]
